FAERS Safety Report 8364377-7 (Version None)
Quarter: 2012Q2

REPORT INFORMATION
  Report Type: 
  Country: None (occurrence: None)
  Receive Date: 20120516
  Receipt Date: 20051210
  Transmission Date: 20120825
  Serious: Yes (Other)
  Sender: FDA-Public Use
  Company Number: PHHY2005SG007150

PATIENT
  Sex: Female

DRUGS (1)
  1. GLEEVEC [Suspect]
     Indication: CHRONIC MYELOID LEUKAEMIA
     Dates: start: 20030703

REACTIONS (2)
  - CHRONIC MYELOID LEUKAEMIA [None]
  - NEOPLASM MALIGNANT [None]
